FAERS Safety Report 18269067 (Version 1)
Quarter: 2020Q3

REPORT INFORMATION
  Report Type: Spontaneous
  Country: CN (occurrence: CN)
  Receive Date: 20200915
  Receipt Date: 20200915
  Transmission Date: 20201103
  Serious: Yes (Hospitalization, Other)
  Sender: FDA-Public Use
  Company Number: CN-JNJFOC-20200733464

PATIENT
  Age: 26 Year
  Sex: Female
  Weight: 46 kg

DRUGS (8)
  1. THALIDOMIDE [Concomitant]
     Active Substance: THALIDOMIDE
  2. VITAMIN C [Concomitant]
     Active Substance: ASCORBIC ACID
  3. MESALAZINE [Concomitant]
     Active Substance: MESALAMINE
     Route: 048
  4. PANTOPRAZOLE [Concomitant]
     Active Substance: PANTOPRAZOLE
  5. PREDNISONE ACETATE [Concomitant]
     Active Substance: PREDNISONE ACETATE
  6. IRON SUCROSE [Concomitant]
     Active Substance: IRON SUCROSE
  7. REMICADE [Suspect]
     Active Substance: INFLIXIMAB
     Indication: CROHN^S DISEASE
     Route: 042
     Dates: start: 2018
  8. BACILLUS SUBTILIS [Concomitant]
     Active Substance: BACILLUS SUBTILIS

REACTIONS (4)
  - Crohn^s disease [Unknown]
  - Colon cancer [Unknown]
  - Infusion related reaction [Recovering/Resolving]
  - Drug hypersensitivity [Recovering/Resolving]

NARRATIVE: CASE EVENT DATE: 201902
